FAERS Safety Report 18182780 (Version 2)
Quarter: 2020Q3

REPORT INFORMATION
  Report Type: Spontaneous
  Country: CN (occurrence: CN)
  Receive Date: 20200821
  Receipt Date: 20200825
  Transmission Date: 20201103
  Serious: Yes (Death, Other)
  Sender: FDA-Public Use
  Company Number: CN-ASTRAZENECA-2020SF03113

PATIENT
  Sex: Male

DRUGS (1)
  1. TAGRISSO [Suspect]
     Active Substance: OSIMERTINIB
     Indication: LUNG NEOPLASM MALIGNANT
     Route: 048

REACTIONS (6)
  - Gastric haemorrhage [Unknown]
  - Drug resistance [Fatal]
  - Cardiac failure [Unknown]
  - Respiratory failure [Unknown]
  - Malignant neoplasm progression [Unknown]
  - Drug ineffective [Fatal]
